FAERS Safety Report 12196692 (Version 1)
Quarter: 2016Q1

REPORT INFORMATION
  Report Type: Report from Study
  Country: DE (occurrence: DE)
  Receive Date: 20160321
  Receipt Date: 20160321
  Transmission Date: 20160526
  Serious: Yes (Hospitalization)
  Sender: FDA-Public Use
  Company Number: DE-ABBVIE-16K-062-1582612-00

PATIENT
  Age: 22 Year
  Sex: Female

DRUGS (7)
  1. AZATHIOPRIN [Concomitant]
     Active Substance: AZATHIOPRINE
     Indication: JUVENILE IDIOPATHIC ARTHRITIS
     Dosage: START DOSE 50 MG, 1 PER DAY; TO BE INCREASED WEEKLY TO FINAL DOSE OF 100-125 MG PER DAY
     Dates: start: 201507
  2. MESALAZIN [Concomitant]
     Active Substance: MESALAMINE
     Indication: PRODUCT USED FOR UNKNOWN INDICATION
     Dates: start: 201105
  3. HUMIRA [Suspect]
     Active Substance: ADALIMUMAB
     Indication: JUVENILE IDIOPATHIC ARTHRITIS
     Route: 058
     Dates: start: 201210, end: 201507
  4. PANTOPRAZOL [Concomitant]
     Active Substance: PANTOPRAZOLE SODIUM
     Indication: PRODUCT USED FOR UNKNOWN INDICATION
  5. ETORICOXIB [Concomitant]
     Active Substance: ETORICOXIB
     Indication: PRODUCT USED FOR UNKNOWN INDICATION
  6. NOVALGIN [Suspect]
     Active Substance: METAMIZOLE SODIUM
     Indication: PRODUCT USED FOR UNKNOWN INDICATION
     Route: 065
  7. SIRDALUD [Concomitant]
     Active Substance: TIZANIDINE
     Indication: PRODUCT USED FOR UNKNOWN INDICATION

REACTIONS (16)
  - Tricuspid valve incompetence [Unknown]
  - Bone marrow oedema [Unknown]
  - Lupus-like syndrome [Not Recovered/Not Resolved]
  - Urticaria [Unknown]
  - Erythema [Recovering/Resolving]
  - Myalgia [Unknown]
  - Arthralgia [Unknown]
  - Intervertebral disc disorder [Unknown]
  - Photosensitivity reaction [Unknown]
  - Drug hypersensitivity [Unknown]
  - Pustular psoriasis [Recovering/Resolving]
  - Drug intolerance [Unknown]
  - Collagen disorder [Unknown]
  - Arthropathy [Unknown]
  - Spinal pain [Unknown]
  - Tenosynovitis [Unknown]

NARRATIVE: CASE EVENT DATE: 2015
